FAERS Safety Report 4969246-8 (Version None)
Quarter: 2006Q2

REPORT INFORMATION
  Report Type: 
  Country: None (occurrence: None)
  Receive Date: 20060405
  Receipt Date: 20060327
  Transmission Date: 20061013
  Serious: Yes (Other)
  Sender: FDA-Public Use
  Company Number: 2006042347

PATIENT
  Sex: Male

DRUGS (4)
  1. LIPITOR [Suspect]
     Indication: ILL-DEFINED DISORDER
  2. METOPROLOL TARTRATE [Concomitant]
  3. TAMSULOSIN HCL [Concomitant]
  4. PROSCAR [Concomitant]

REACTIONS (4)
  - ARTERIAL DISORDER [None]
  - BLOOD PRESSURE SYSTOLIC INCREASED [None]
  - CARDIAC STRESS TEST ABNORMAL [None]
  - STENT PLACEMENT [None]
